FAERS Safety Report 19725770 (Version 1)
Quarter: 2021Q3

REPORT INFORMATION
  Report Type: Spontaneous
  Country: US (occurrence: US)
  Receive Date: 20210820
  Receipt Date: 20210820
  Transmission Date: 20211014
  Serious: No
  Sender: FDA-Public Use
  Company Number: US-CELLTRION INC.-2021US010419

PATIENT

DRUGS (3)
  1. TRUXIMA [Suspect]
     Active Substance: RITUXIMAB-ABBS
     Indication: PRODUCT USED FOR UNKNOWN INDICATION
     Dosage: 700 MG, TITRATION OF 50 ML PER HOUR RATE
     Route: 042
     Dates: start: 20210607, end: 20210607
  2. TRUXIMA [Suspect]
     Active Substance: RITUXIMAB-ABBS
     Dosage: 700 MG, TITRATION OF 150 ML PER HOUR RATE
     Route: 042
     Dates: start: 20210607, end: 20210607
  3. TRUXIMA [Suspect]
     Active Substance: RITUXIMAB-ABBS
     Dosage: 700 MG, TITRATION OF 100 ML PER HOUR RATE
     Route: 042
     Dates: start: 20210607, end: 20210607

REACTIONS (2)
  - Throat irritation [Recovered/Resolved]
  - Chills [Recovered/Resolved]

NARRATIVE: CASE EVENT DATE: 20210607
